FAERS Safety Report 5642463-X (Version None)
Quarter: 2008Q1

REPORT INFORMATION
  Report Type: 
  Country: None (occurrence: None)
  Receive Date: 20080228
  Receipt Date: 20080218
  Transmission Date: 20080703
  Serious: Yes (Hospitalization)
  Sender: FDA-Public Use
  Company Number: BR-JNJFOC-20080204499

PATIENT
  Age: 22 Year
  Sex: Female
  Weight: 57 kg

DRUGS (2)
  1. ORTHO EVRA [Suspect]
  2. ORTHO EVRA [Suspect]
     Indication: POLYCYSTIC OVARIES

REACTIONS (4)
  - BLOOD PRESSURE DECREASED [None]
  - HYPOAESTHESIA [None]
  - NAUSEA [None]
  - OFF LABEL USE [None]
